FAERS Safety Report 25186159 (Version 1)
Quarter: 2025Q2

REPORT INFORMATION
  Report Type: Spontaneous
  Country: NL (occurrence: NL)
  Receive Date: 20250410
  Receipt Date: 20250410
  Transmission Date: 20250717
  Serious: Yes (Death)
  Sender: PRINSTON PHARMACEUTICAL
  Company Number: NL-PRINSTON PHARMACEUTICAL INC.-2025PRN00117

PATIENT
  Age: 23 Year
  Sex: Male

DRUGS (5)
  1. QUETIAPINE [Suspect]
     Active Substance: QUETIAPINE
  2. 3-METHYLMETHCATHINONE [Suspect]
     Active Substance: 3-METHYLMETHCATHINONE
     Route: 065
  3. ALCOHOL [Suspect]
     Active Substance: ALCOHOL
     Route: 065
  4. OXYCODONE [Suspect]
     Active Substance: OXYCODONE
  5. GRAPEFRUIT [Suspect]
     Active Substance: GRAPEFRUIT

REACTIONS (3)
  - Toxic leukoencephalopathy [Fatal]
  - Multiple organ dysfunction syndrome [Fatal]
  - Substance abuse [Fatal]
